FAERS Safety Report 8339783-7 (Version None)
Quarter: 2012Q2

REPORT INFORMATION
  Report Type: 
  Country: None (occurrence: None)
  Receive Date: 20120507
  Receipt Date: 20120426
  Transmission Date: 20120825
  Serious: Yes (Hospitalization)
  Sender: FDA-Public Use
  Company Number: NL-MEDIMMUNE-MEDI-0014687

PATIENT
  Sex: Female
  Weight: 7.86 kg

DRUGS (2)
  1. SYNAGIS [Suspect]
     Indication: BRONCHOPULMONARY DYSPLASIA
     Route: 030
     Dates: start: 20110901, end: 20111220
  2. SYNAGIS [Suspect]
     Route: 030
     Dates: start: 20120117, end: 20120117

REACTIONS (2)
  - NASOPHARYNGITIS [None]
  - PYREXIA [None]
